FAERS Safety Report 5628498-1 (Version None)
Quarter: 2008Q1

REPORT INFORMATION
  Report Type: 
  Country: None (occurrence: None)
  Receive Date: 20080215
  Receipt Date: 20080206
  Transmission Date: 20080703
  Serious: Yes (Hospitalization)
  Sender: FDA-Public Use
  Company Number: ES-GENENTECH-245623

PATIENT
  Sex: Female
  Weight: 65 kg

DRUGS (14)
  1. RITUXIMAB [Suspect]
     Indication: CHRONIC LYMPHOCYTIC LEUKAEMIA
     Dosage: 500 MG/M2, Q28D
     Route: 042
     Dates: start: 20061017
  2. FLUDARABINE [Suspect]
     Indication: CHRONIC LYMPHOCYTIC LEUKAEMIA
     Dosage: 25 MG/M2, UNK
     Route: 042
     Dates: start: 20061018
  3. CYCLOPHOSPHAMIDE [Suspect]
     Indication: CHRONIC LYMPHOCYTIC LEUKAEMIA
     Dosage: 250 MG/M2, QDX3D/28DC
     Route: 042
     Dates: start: 20061018
  4. METFORMIN HCL [Suspect]
     Indication: DIABETES MELLITUS
     Dates: start: 20010615, end: 20071028
  5. METFORMIN HCL [Suspect]
  6. COTRIMOXAZOLE [Concomitant]
     Indication: DRUG USE FOR UNKNOWN INDICATION
     Dosage: 1800 MG, UNK
     Dates: start: 20061031, end: 20070720
  7. COTRIMOXAZOLE [Concomitant]
     Dates: start: 20071129
  8. FLUCONAZOLE [Concomitant]
     Dosage: 400 MG, UNK
     Dates: start: 20070525, end: 20070720
  9. GLICLAZIDE [Concomitant]
     Indication: DRUG USE FOR UNKNOWN INDICATION
     Dates: start: 20030615, end: 20071028
  10. LOPERAMIDE HCL [Concomitant]
     Indication: DRUG USE FOR UNKNOWN INDICATION
     Dates: start: 20071023, end: 20071028
  11. VORICONAZOLE [Concomitant]
     Indication: DRUG USE FOR UNKNOWN INDICATION
     Dates: start: 20071023, end: 20071028
  12. OMEPRAZOLE [Concomitant]
     Indication: DRUG USE FOR UNKNOWN INDICATION
     Dates: start: 20061010
  13. LEVOFLOXACIN [Concomitant]
     Indication: DRUG USE FOR UNKNOWN INDICATION
     Dates: start: 20080112, end: 20080121
  14. CASPOFUNGIN [Concomitant]
     Indication: DRUG USE FOR UNKNOWN INDICATION
     Dates: start: 20080112, end: 20080121

REACTIONS (1)
  - METABOLIC ACIDOSIS [None]
